FAERS Safety Report 16905910 (Version 1)
Quarter: 2019Q4

REPORT INFORMATION
  Report Type: Spontaneous
  Country: US (occurrence: US)
  Receive Date: 20191010
  Receipt Date: 20191010
  Transmission Date: 20200122
  Serious: No
  Sender: FDA-Public Use
  Company Number: US-CELGENEUS-USA-20191000677

PATIENT
  Sex: Male
  Weight: 65.59 kg

DRUGS (3)
  1. REVLIMID [Suspect]
     Active Substance: LENALIDOMIDE
     Indication: AMYLOIDOSIS
     Dosage: 15 MILLIGRAM
     Route: 048
     Dates: start: 201905
  2. REVLIMID [Suspect]
     Active Substance: LENALIDOMIDE
     Indication: OFF LABEL USE
     Dosage: 5 MILLIGRAM
     Route: 048
     Dates: start: 20190709
  3. REVLIMID [Suspect]
     Active Substance: LENALIDOMIDE
     Indication: SECONDARY AMYLOIDOSIS
     Dosage: 15 MILLIGRAM
     Route: 048
     Dates: start: 201611

REACTIONS (1)
  - Gastrointestinal motility disorder [Unknown]

NARRATIVE: CASE EVENT DATE: 2019
